FAERS Safety Report 9068920 (Version 1)
Quarter: 2013Q1

REPORT INFORMATION
  Report Type: Spontaneous
  Country: CA (occurrence: CA)
  Receive Date: 20130128
  Receipt Date: 20130128
  Transmission Date: 20140127
  Serious: Yes (Life-Threatening, Hospitalization, Other)
  Sender: FDA-Public Use
  Company Number: PHHY2013CA007493

PATIENT
  Age: 51 Year
  Sex: Female

DRUGS (3)
  1. CLOZARIL [Suspect]
     Dosage: 300 MG, BID
  2. DOXEPIN [Concomitant]
  3. MULTIVITAMINS [Concomitant]

REACTIONS (5)
  - Gastrointestinal stoma complication [Unknown]
  - Oxygen consumption decreased [Unknown]
  - Thrombosis [Unknown]
  - Pneumonia [Unknown]
  - Gastrointestinal hypomotility [Unknown]
